FAERS Safety Report 17945921 (Version 2)
Quarter: 2020Q3

REPORT INFORMATION
  Report Type: Report from Study
  Country: US (occurrence: US)
  Receive Date: 20200625
  Receipt Date: 20200827
  Transmission Date: 20201103
  Serious: Yes (Hospitalization, Other)
  Sender: FDA-Public Use
  Company Number: US-GILEAD-2020-0474490

PATIENT
  Age: 69 Year
  Sex: Male
  Weight: 108.9 kg

DRUGS (9)
  1. DEMADEX [Concomitant]
     Active Substance: TORSEMIDE
  2. SYNTHROID [Concomitant]
     Active Substance: LEVOTHYROXINE SODIUM
  3. AMBRISENTAN [Suspect]
     Active Substance: AMBRISENTAN
     Indication: PULMONARY ARTERIAL HYPERTENSION
     Dosage: 5 MG, QD
     Route: 048
     Dates: start: 20180118
  4. SPIRONOLACTONE. [Concomitant]
     Active Substance: SPIRONOLACTONE
  5. WARFARIN [Concomitant]
     Active Substance: WARFARIN
  6. AMIODARONE [Concomitant]
     Active Substance: AMIODARONE
  7. REVATIO [Concomitant]
     Active Substance: SILDENAFIL CITRATE
  8. AMOXICIL [Concomitant]
  9. FLONASE [MOMETASONE FUROATE] [Concomitant]
     Active Substance: MOMETASONE FUROATE

REACTIONS (1)
  - Diabetes mellitus [Unknown]
